FAERS Safety Report 23145580 (Version 1)
Quarter: 2023Q4

REPORT INFORMATION
  Report Type: Spontaneous
  Country: US (occurrence: US)
  Receive Date: 20231103
  Receipt Date: 20231103
  Transmission Date: 20240110
  Serious: Yes (Death, Life-Threatening, Other)
  Sender: FDA-Public Use
  Company Number: US-BRACCO-2023US05539

PATIENT
  Sex: Male

DRUGS (3)
  1. LUMASON [Suspect]
     Active Substance: SULFUR HEXAFLUORIDE
     Indication: Diagnostic procedure
     Dosage: UNK
     Dates: start: 20231024, end: 20231024
  2. LUMASON [Suspect]
     Active Substance: SULFUR HEXAFLUORIDE
     Indication: Diagnostic procedure
     Dosage: UNK
     Dates: start: 20231024, end: 20231024
  3. LUMASON [Suspect]
     Active Substance: SULFUR HEXAFLUORIDE
     Indication: Diagnostic procedure
     Dosage: UNK
     Dates: start: 20231024, end: 20231024

REACTIONS (5)
  - Cardiac arrest [Fatal]
  - Heart rate decreased [Unknown]
  - Cyanosis [Unknown]
  - Musculoskeletal stiffness [Unknown]
  - Nausea [Unknown]

NARRATIVE: CASE EVENT DATE: 20231024
